FAERS Safety Report 8310801-5 (Version None)
Quarter: 2012Q2

REPORT INFORMATION
  Report Type: 
  Country: None (occurrence: None)
  Receive Date: 20120425
  Receipt Date: 20120418
  Transmission Date: 20120825
  Serious: Yes (Hospitalization, Other)
  Sender: FDA-Public Use
  Company Number: DE-UCBSA-055724

PATIENT
  Age: 54 Year
  Sex: Male
  Weight: 70 kg

DRUGS (2)
  1. KEPPRA [Suspect]
     Dosage: 25ML OVER 1 HOUR, TOTAL AMOUNT- 2500 MG
     Route: 042
  2. KEPPRA [Suspect]
     Dosage: 500 MG DAILY
     Dates: start: 20120101

REACTIONS (1)
  - ACCIDENTAL OVERDOSE [None]
